FAERS Safety Report 10886499 (Version 1)
Quarter: 2015Q1

REPORT INFORMATION
  Report Type: Spontaneous
  Country: US (occurrence: None)
  Receive Date: 20150227
  Receipt Date: 20150227
  Transmission Date: 20150721
  Serious: Yes (Hospitalization)
  Sender: FDA-Public Use
  Company Number: None

PATIENT
  Age: 89 Year
  Sex: Female
  Weight: 71.8 kg

DRUGS (2)
  1. ENOXAPARIN [Suspect]
     Active Substance: ENOXAPARIN
     Indication: INTRACARDIAC THROMBUS
     Dosage: SQ
     Dates: start: 20140520, end: 20140609
  2. WARFARIN [Suspect]
     Active Substance: WARFARIN
     Indication: INTRACARDIAC THROMBUS
     Dosage: UD
     Route: 048
     Dates: start: 20140520, end: 20140602

REACTIONS (8)
  - Haemorrhage [None]
  - Pain in extremity [None]
  - Oedema peripheral [None]
  - Ecchymosis [None]
  - Rash [None]
  - Haematoma [None]
  - Haemoglobin decreased [None]
  - Anticoagulation drug level below therapeutic [None]

NARRATIVE: CASE EVENT DATE: 20140603
